FAERS Safety Report 7457016-0 (Version None)
Quarter: 2011Q2

REPORT INFORMATION
  Report Type: 
  Country: None (occurrence: None)
  Receive Date: 20110504
  Receipt Date: 20110419
  Transmission Date: 20111010
  Serious: Yes (Other)
  Sender: FDA-Public Use
  Company Number: US-JNJFOC-20110411159

PATIENT
  Age: 19 Year
  Sex: Female

DRUGS (1)
  1. ULTRAM [Suspect]
     Indication: ACCIDENTAL EXPOSURE
     Dosage: 200 MG AT 9 AM AND 200 MG AT 3 PM
     Route: 048

REACTIONS (2)
  - ACCIDENTAL EXPOSURE [None]
  - CONVULSION [None]
